FAERS Safety Report 4555053-7 (Version None)
Quarter: 2005Q1

REPORT INFORMATION
  Report Type: 
  Country: None (occurrence: None)
  Receive Date: 20041228
  Receipt Date: 20040409
  Transmission Date: 20050727
  Serious: Yes (Other)
  Sender: FDA-Public Use
  Company Number: PHEH2004US04087

PATIENT
  Age: 71 Year
  Sex: Female

DRUGS (12)
  1. AREDIA [Suspect]
     Dosage: 90MG OVER 1-2 HOURS
     Dates: start: 20021210, end: 20030723
  2. ZOMETA [Suspect]
     Dosage: 4 MG, ONCE/SINGLE
     Dates: start: 20030827, end: 20030827
  3. CARBOPLATIN [Concomitant]
  4. LETROZOLE [Concomitant]
  5. TAXOL [Concomitant]
  6. DEXAMETHASONE [Concomitant]
  7. DIPHENHYDRAMINE HCL [Concomitant]
  8. GRANISETRON (GRANISETRON) [Concomitant]
  9. HYDROXYZINE HCL [Concomitant]
  10. ONDANSETRON HCL [Concomitant]
  11. RANITIDINE HYDROCHLORIDE [Concomitant]
  12. .. [Concomitant]

REACTIONS (1)
  - OSTEONECROSIS [None]
